FAERS Safety Report 20722733 (Version 1)
Quarter: 2022Q2

REPORT INFORMATION
  Report Type: Spontaneous
  Country: CA (occurrence: None)
  Receive Date: 20220419
  Receipt Date: 20220419
  Transmission Date: 20220721
  Serious: Yes (Other)
  Sender: FDA-Public Use
  Company Number: CA-PFIZER INC-202200531480

PATIENT
  Age: 40 Year
  Sex: Female
  Weight: 128 kg

DRUGS (1)
  1. METHOTREXATE [Suspect]
     Active Substance: METHOTREXATE
     Indication: Product used for unknown indication
     Dosage: 25 MG IN THE PAST FOR 1 WEEK
     Route: 065

REACTIONS (1)
  - Atrial fibrillation [Unknown]
